FAERS Safety Report 9928690 (Version 1)
Quarter: 2014Q1

REPORT INFORMATION
  Report Type: Spontaneous
  Country: GB (occurrence: None)
  Receive Date: 20140225
  Receipt Date: 20140225
  Transmission Date: 20141002
  Serious: Yes (Other)
  Sender: FDA-Public Use
  Company Number: 2014AP001356

PATIENT
  Age: 79 Year
  Sex: Female

DRUGS (5)
  1. ALENDRONATE (ALENDRONATE SODIUM) [Suspect]
     Indication: FEMUR FRACTURE
     Route: 048
     Dates: start: 20070304, end: 20130628
  2. MULTIVITAMINS (MULTIVITAMINS) [Concomitant]
  3. MEGA 3 FISH OIL (FISH OIL) [Concomitant]
  4. TEMAZEPAM (TEMAZEPAM) [Concomitant]
  5. THYROXINE (LEVOTHYROXINE SODIUM) [Concomitant]

REACTIONS (5)
  - Bone pain [None]
  - Flatulence [None]
  - Malaise [None]
  - Myalgia [None]
  - Hypoaesthesia [None]
